FAERS Safety Report 18485272 (Version 2)
Quarter: 2020Q4

REPORT INFORMATION
  Report Type: Spontaneous
  Country: US (occurrence: US)
  Receive Date: 20201110
  Receipt Date: 20201203
  Transmission Date: 20210114
  Serious: No
  Sender: FDA-Public Use
  Company Number: US-B.I. PHARMACEUTICALS,INC./RIDGEFIELD-2020-BI-060714

PATIENT
  Age: 68 Year
  Sex: Female

DRUGS (1)
  1. OFEV [Suspect]
     Active Substance: NINTEDANIB
     Indication: INTERSTITIAL LUNG DISEASE
     Dosage: 100MG BID
     Route: 065
     Dates: start: 20201026

REACTIONS (5)
  - Nausea [Not Recovered/Not Resolved]
  - Hot flush [Not Recovered/Not Resolved]
  - Flatulence [Not Recovered/Not Resolved]
  - Aphasia [Not Recovered/Not Resolved]
  - Oropharyngeal pain [Not Recovered/Not Resolved]

NARRATIVE: CASE EVENT DATE: 202010
